FAERS Safety Report 4843911-5 (Version None)
Quarter: 2005Q4

REPORT INFORMATION
  Report Type: 
  Country: None (occurrence: None)
  Receive Date: 20051202
  Receipt Date: 20050617
  Transmission Date: 20060501
  Serious: No
  Sender: FDA-Public Use
  Company Number: US-GLAXOSMITHKLINE-A0563467A

PATIENT
  Age: 2 Year
  Sex: Male

DRUGS (1)
  1. AUGMENTIN [Suspect]
     Route: 048
     Dates: start: 20050610

REACTIONS (2)
  - ERYTHEMA [None]
  - RASH GENERALISED [None]
